FAERS Safety Report 24858942 (Version 2)
Quarter: 2025Q1

REPORT INFORMATION
  Report Type: Report from Study
  Country: US (occurrence: US)
  Receive Date: 20250118
  Receipt Date: 20250301
  Transmission Date: 20250408
  Serious: Yes (Hospitalization)
  Sender: ABBVIE
  Company Number: US-ABBVIE-6019193

PATIENT
  Age: 73 Year
  Sex: Female

DRUGS (2)
  1. RINVOQ [Suspect]
     Active Substance: UPADACITINIB
     Indication: Psoriatic arthropathy
     Route: 048
     Dates: start: 20240715
  2. RINVOQ [Suspect]
     Active Substance: UPADACITINIB
     Indication: Psoriatic arthropathy
     Route: 048

REACTIONS (4)
  - Pneumonia [Recovered/Resolved]
  - Bronchitis [Unknown]
  - Respiratory syncytial virus infection [Unknown]
  - General symptom [Unknown]

NARRATIVE: CASE EVENT DATE: 20241112
